FAERS Safety Report 8125928-0 (Version None)
Quarter: 2012Q1

REPORT INFORMATION
  Report Type: 
  Country: None (occurrence: None)
  Receive Date: 20120209
  Receipt Date: 20120130
  Transmission Date: 20120608
  Serious: Yes (Death)
  Sender: FDA-Public Use
  Company Number: JP-ROCHE-GNE318875

PATIENT
  Age: 93 Year
  Sex: Female

DRUGS (5)
  1. ALTEPLASE [Suspect]
     Indication: EMBOLIC STROKE
     Dosage: 18 ML, X1
     Route: 042
     Dates: start: 20110129, end: 20110129
  2. ZANTAC [Concomitant]
     Indication: PRODUCT USED FOR UNKNOWN INDICATION
     Dosage: 500 MG, QD
     Dates: start: 20110129, end: 20110130
  3. ISOTONIC SOLUTION [Concomitant]
     Indication: PRODUCT USED FOR UNKNOWN INDICATION
     Dosage: UNK
     Dates: start: 20110129, end: 20110130
  4. MAINTENANCE MEDIUM 6 (UNK INGREDIENTS) [Concomitant]
     Indication: PRODUCT USED FOR UNKNOWN INDICATION
     Dates: start: 20110629, end: 20110630
  5. EDARAVONE [Suspect]
     Indication: EMBOLIC STROKE
     Dosage: 30 MG, BID
     Route: 041
     Dates: start: 20110129, end: 20110130

REACTIONS (1)
  - CARDIAC FAILURE CONGESTIVE [None]
